FAERS Safety Report 7748382-7 (Version None)
Quarter: 2011Q3

REPORT INFORMATION
  Report Type: 
  Country: None (occurrence: None)
  Receive Date: 20110913
  Receipt Date: 20110907
  Transmission Date: 20111222
  Serious: Yes (Other)
  Sender: FDA-Public Use
  Company Number: US-MERCK-1108USA02386

PATIENT
  Age: 58 Year
  Sex: Male

DRUGS (3)
  1. FLUCONAZOLE [Suspect]
     Indication: FUNGAL ENDOCARDITIS
     Route: 065
  2. AMBISOME [Suspect]
     Indication: FUNGAL ENDOCARDITIS
     Route: 065
  3. CANCIDAS [Suspect]
     Indication: FUNGAL ENDOCARDITIS
     Route: 065

REACTIONS (2)
  - PYREXIA [None]
  - OSTEOMYELITIS FUNGAL [None]
